FAERS Safety Report 8431460-7 (Version None)
Quarter: 2012Q2

REPORT INFORMATION
  Report Type: 
  Country: None (occurrence: None)
  Receive Date: 20120607
  Receipt Date: 20120607
  Transmission Date: 20120825
  Serious: No
  Sender: FDA-Public Use
  Company Number: None

PATIENT
  Age: 74 Year
  Sex: Female
  Weight: 49.8957 kg

DRUGS (2)
  1. PLAVIX [Suspect]
     Dosage: 75 1 A DAY NO LONGER TAKE
  2. EFFIENT [Suspect]
     Dosage: 10 MG 1 A DAY

REACTIONS (3)
  - WEIGHT DECREASED [None]
  - SKIN DISCOLOURATION [None]
  - DECREASED APPETITE [None]
